FAERS Safety Report 5427230-4 (Version None)
Quarter: 2007Q3

REPORT INFORMATION
  Report Type: 
  Country: None (occurrence: None)
  Receive Date: 20070828
  Receipt Date: 20070814
  Transmission Date: 20080115
  Serious: Yes (Hospitalization)
  Sender: FDA-Public Use
  Company Number: US-SOLVAY-00206001844

PATIENT
  Sex: Male
  Weight: 235 kg

DRUGS (11)
  1. DEPO-TESTOSTERONE [Concomitant]
     Indication: ANDROGEN REPLACEMENT THERAPY
     Dosage: DAILY DOSE:  UNKNOWN
     Route: 058
     Dates: start: 20041101
  2. ANDROGEL [Suspect]
     Indication: ARTHRALGIA
     Dosage: DAILY DOSE: 5 GRAM(S)
     Route: 062
     Dates: start: 20041101
  3. ANDROGEL [Suspect]
     Dosage: DAILY DOSE: 10 GRAM(S)
     Route: 062
     Dates: end: 20050701
  4. ANDROGEL [Suspect]
     Dosage: DAILY DOSE: 20 GRAM(S)
     Route: 062
     Dates: start: 20050701, end: 20051101
  5. ANDROGEL [Suspect]
     Dosage: DAILY DOSE:  20 TO 30 G DAILY
     Route: 062
     Dates: start: 20051101, end: 20060501
  6. ANDROGEL [Suspect]
     Dosage: DAILY DOSE: 10 GRAM(S)
     Route: 062
     Dates: start: 20061101
  7. CONCERTA [Concomitant]
     Indication: ATTENTION DEFICIT/HYPERACTIVITY DISORDER
     Dosage: DAILY DOSE:  UNKNOWN
     Route: 048
     Dates: start: 20060101
  8. SUPPLEMENT WITH SAW PALMETTO AND OTHER HERBS [Suspect]
     Indication: NUTRITIONAL SUPPORT
     Dosage: DAILY DOSE:  UNKNOWN
     Route: 048
     Dates: end: 20060501
  9. ZYRTEC [Concomitant]
     Indication: HYPERSENSITIVITY
     Dosage: DAILY DOSE:  UNKNOWN
     Route: 048
  10. ALBUTEROL [Concomitant]
     Indication: HYPERSENSITIVITY
     Dosage: DAILY DOSE:  UNKNOWN AS NEEDED
     Route: 048
  11. DYAZIDE [Concomitant]
     Indication: OEDEMA PERIPHERAL
     Dosage: DAILY DOSE:  UNKNOWN
     Route: 048

REACTIONS (9)
  - BLOOD OESTROGEN INCREASED [None]
  - CARDIAC FLUTTER [None]
  - GYNAECOMASTIA [None]
  - HAIR GROWTH ABNORMAL [None]
  - HOT FLUSH [None]
  - OEDEMA [None]
  - SUPRAVENTRICULAR TACHYCARDIA [None]
  - TESTICULAR ATROPHY [None]
  - VARICOSE VEIN RUPTURED [None]
